FAERS Safety Report 7740343-7 (Version None)
Quarter: 2011Q3

REPORT INFORMATION
  Report Type: 
  Country: None (occurrence: None)
  Receive Date: 20110909
  Receipt Date: 20110907
  Transmission Date: 20111222
  Serious: Yes (Hospitalization, Other)
  Sender: FDA-Public Use
  Company Number: DE-ABBOTT-11P-062-0852155-00

PATIENT
  Age: 41 Year
  Sex: Male
  Weight: 84 kg

DRUGS (2)
  1. CORTISONE ACETATE [Concomitant]
     Indication: ANKYLOSING SPONDYLITIS
  2. HUMIRA [Suspect]
     Indication: ANKYLOSING SPONDYLITIS
     Route: 058
     Dates: start: 20100906, end: 20110101

REACTIONS (2)
  - HAEMORRHOIDS [None]
  - RECTAL CANCER [None]
